FAERS Safety Report 5218644-6 (Version None)
Quarter: 2007Q1

REPORT INFORMATION
  Report Type: 
  Country: None (occurrence: None)
  Receive Date: 20070122
  Receipt Date: 20070110
  Transmission Date: 20070707
  Serious: Yes (Death)
  Sender: FDA-Public Use
  Company Number: 2007EU000098

PATIENT
  Age: 60 Year
  Sex: Male

DRUGS (1)
  1. PROGRAF [Suspect]
     Indication: LIVER TRANSPLANT
     Dates: end: 20031201

REACTIONS (4)
  - ALPHA 1 FOETOPROTEIN INCREASED [None]
  - HEPATIC CANCER METASTATIC [None]
  - METASTASES TO LUNG [None]
  - PLEURAL EFFUSION [None]
